FAERS Safety Report 23153542 (Version 4)
Quarter: 2024Q3

REPORT INFORMATION
  Report Type: Spontaneous
  Country: US (occurrence: US)
  Receive Date: 20231107
  Receipt Date: 20240827
  Transmission Date: 20241016
  Serious: No
  Sender: BAUSCH AND LOMB
  Company Number: US-BAUSCHBL-2023BNL011189

PATIENT
  Age: 75 Year
  Sex: Male
  Weight: 106.14 kg

DRUGS (8)
  1. LOTEMAX SM [Suspect]
     Active Substance: LOTEPREDNOL ETABONATE
     Indication: Postoperative care
     Route: 047
     Dates: start: 20231027
  2. LOTEMAX SM [Suspect]
     Active Substance: LOTEPREDNOL ETABONATE
     Dosage: REDUCED TO TWICE DAILY
     Route: 047
  3. LOTEMAX SM [Suspect]
     Active Substance: LOTEPREDNOL ETABONATE
     Dosage: REDUCED TO ONCE DAILY
     Route: 047
  4. LOTEMAX SM [Suspect]
     Active Substance: LOTEPREDNOL ETABONATE
     Route: 047
  5. LOTEMAX SM [Suspect]
     Active Substance: LOTEPREDNOL ETABONATE
     Route: 047
  6. INSULIN NOS [Concomitant]
     Active Substance: INSULIN NOS
     Indication: Product used for unknown indication
  7. NEXIUM [Concomitant]
     Active Substance: ESOMEPRAZOLE MAGNESIUM
     Indication: Product used for unknown indication
  8. LOSARTAN [Concomitant]
     Active Substance: LOSARTAN\LOSARTAN POTASSIUM
     Indication: Product used for unknown indication

REACTIONS (4)
  - Burning sensation [Unknown]
  - Intentional product use issue [Unknown]
  - Product packaging quantity issue [Unknown]
  - Off label use [Unknown]

NARRATIVE: CASE EVENT DATE: 20231101
